FAERS Safety Report 12449576 (Version 1)
Quarter: 2016Q2

REPORT INFORMATION
  Report Type: Other
  Country: TN (occurrence: TN)
  Receive Date: 20160609
  Receipt Date: 20160609
  Transmission Date: 20160815
  Serious: No
  Sender: FDA-Public Use
  Company Number: TN-LUPIN PHARMACEUTICALS INC.-2016-01003

PATIENT
  Age: 52 Year
  Sex: Female

DRUGS (6)
  1. ISONIAZID. [Suspect]
     Active Substance: ISONIAZID
     Indication: PRODUCT USED FOR UNKNOWN INDICATION
     Route: 065
  2. ISONIAZID. [Suspect]
     Active Substance: ISONIAZID
     Route: 065
  3. ISONIAZID. [Suspect]
     Active Substance: ISONIAZID
     Route: 065
  4. ISONIAZID. [Suspect]
     Active Substance: ISONIAZID
     Route: 065
  5. RIFAMPICIN [Suspect]
     Active Substance: RIFAMPIN
     Indication: PRODUCT USED FOR UNKNOWN INDICATION
     Route: 065
  6. RIFAMPICIN [Suspect]
     Active Substance: RIFAMPIN
     Route: 065

REACTIONS (2)
  - Pruritus [Unknown]
  - Drug eruption [Unknown]
